FAERS Safety Report 8607724-0 (Version None)
Quarter: 2012Q3

REPORT INFORMATION
  Report Type: 
  Country: None (occurrence: None)
  Receive Date: 20120821
  Receipt Date: 20120815
  Transmission Date: 20120928
  Serious: Yes (Hospitalization)
  Sender: FDA-Public Use
  Company Number: US-PFIZER INC-2012199854

PATIENT
  Age: 65 Year
  Sex: Female

DRUGS (1)
  1. AROMASIN [Suspect]
     Indication: BREAST CANCER STAGE I
     Dosage: UNK
     Dates: start: 20120701, end: 20120815

REACTIONS (3)
  - DIARRHOEA [None]
  - DEHYDRATION [None]
  - WEIGHT DECREASED [None]
